FAERS Safety Report 23320397 (Version 1)
Quarter: 2023Q4

REPORT INFORMATION
  Report Type: Spontaneous
  Country: US (occurrence: US)
  Receive Date: 20231220
  Receipt Date: 20231220
  Transmission Date: 20240110
  Serious: No
  Sender: FDA-Public Use
  Company Number: US-PFIZER INC-PV202300201514

PATIENT
  Age: 65 Year
  Sex: Male

DRUGS (14)
  1. XELJANZ [Suspect]
     Active Substance: TOFACITINIB CITRATE
     Dosage: UNK
  2. AMLODIPINE [Concomitant]
     Active Substance: AMLODIPINE BESYLATE
  3. ASPIRIN [Concomitant]
     Active Substance: ASPIRIN
  4. ATORVASTATIN [Concomitant]
     Active Substance: ATORVASTATIN
  5. FOLIC ACID [Concomitant]
     Active Substance: FOLIC ACID
     Dosage: UNK (TUBERCULIN SYRINGE)
  6. INDOMETHACIN [Concomitant]
     Active Substance: INDOMETHACIN
  7. MECLIZINE HYDROCHLORIDE [Concomitant]
     Active Substance: MECLIZINE HYDROCHLORIDE
  8. MEDROL [Concomitant]
     Active Substance: METHYLPREDNISOLONE
  9. METHOTREXATE [Concomitant]
     Active Substance: METHOTREXATE
  10. MIRTAZAPINE [Concomitant]
     Active Substance: MIRTAZAPINE
  11. PANTOPRAZOLE [Concomitant]
     Active Substance: PANTOPRAZOLE
  12. TIZANIDINE [Concomitant]
     Active Substance: TIZANIDINE
  13. TRAMADOL [Concomitant]
     Active Substance: TRAMADOL\TRAMADOL HYDROCHLORIDE
  14. TYLENOL [Concomitant]
     Active Substance: ACETAMINOPHEN

REACTIONS (1)
  - Drug ineffective [Unknown]
